FAERS Safety Report 5899923-6 (Version None)
Quarter: 2008Q3

REPORT INFORMATION
  Report Type: 
  Country: None (occurrence: None)
  Receive Date: 20080926
  Receipt Date: 20080922
  Transmission Date: 20090109
  Serious: Yes (Hospitalization)
  Sender: FDA-Public Use
  Company Number: A0748566A

PATIENT
  Age: 63 Year
  Sex: Female

DRUGS (4)
  1. REQUIP XL [Suspect]
     Indication: PARKINSON'S DISEASE
     Dosage: 10MG PER DAY
     Route: 048
     Dates: start: 20080801
  2. AMOXICILLIN [Suspect]
     Dates: start: 20080914
  3. AMANTADINE [Concomitant]
  4. AZILECT [Concomitant]

REACTIONS (6)
  - BLOOD PRESSURE DECREASED [None]
  - DRUG INTERACTION [None]
  - DYSPNOEA [None]
  - ERYTHEMA [None]
  - ILL-DEFINED DISORDER [None]
  - TOOTH ABSCESS [None]
